FAERS Safety Report 10725325 (Version 5)
Quarter: 2024Q2

REPORT INFORMATION
  Report Type: Other
  Country: VN (occurrence: None)
  Receive Date: 20150120
  Receipt Date: 20240525
  Transmission Date: 20240716
  Serious: Yes (Other)
  Sender: FDA-Public Use
  Company Number: VN-ROCHE-1422963

PATIENT
  Age: 43 Year
  Sex: Male

DRUGS (13)
  1. CELLCEPT [Suspect]
     Active Substance: MYCOPHENOLATE MOFETIL
     Indication: Prophylaxis against transplant rejection
     Route: 065
  2. CELLCEPT [Suspect]
     Active Substance: MYCOPHENOLATE MOFETIL
     Indication: Prophylaxis against transplant rejection
  3. CYCLOSPORINE [Suspect]
     Active Substance: CYCLOSPORINE
     Indication: Prophylaxis against transplant rejection
     Dosage: 1ST 2 WEEKS, CYA^S CONCENTRATION KEPT AT 180-220 NG/ML
     Route: 041
  4. CYCLOSPORINE [Suspect]
     Active Substance: CYCLOSPORINE
     Indication: Prophylaxis against transplant rejection
     Dosage: FROM MONTH 2, C0 FROM150-200NG/ML, C2 FROM 800-1000NG/ML
     Route: 041
  5. CYCLOSPORINE [Suspect]
     Active Substance: CYCLOSPORINE
     Dosage: STARTING DOSE
     Route: 041
  6. SOLU-MEDROL [Suspect]
     Active Substance: METHYLPREDNISOLONE SODIUM SUCCINATE
     Indication: Prophylaxis against transplant rejection
     Dosage: HALVE THE DOSE EVERY 2 DAYS UNTIL THE DOSAGE WAS 20MG/DAY
     Route: 065
  7. SOLU-MEDROL [Suspect]
     Active Substance: METHYLPREDNISOLONE SODIUM SUCCINATE
     Indication: Prophylaxis against transplant rejection
  8. MEDROL [Suspect]
     Active Substance: METHYLPREDNISOLONE
     Indication: Prophylaxis against transplant rejection
     Route: 065
  9. MEDROL [Suspect]
     Active Substance: METHYLPREDNISOLONE
     Indication: Prophylaxis against transplant rejection
     Route: 065
  10. MEDROL [Suspect]
     Active Substance: METHYLPREDNISOLONE
     Route: 065
  11. MEDROL [Suspect]
     Active Substance: METHYLPREDNISOLONE
     Route: 065
  12. INSULIN NOS [Concomitant]
     Active Substance: INSULIN NOS
     Indication: Type 1 diabetes mellitus
  13. ASPIRIN [Concomitant]
     Active Substance: ASPIRIN

REACTIONS (4)
  - Pancreatitis [Recovered/Resolved]
  - Postoperative wound infection [Recovered/Resolved]
  - Duodenal stump fistula [Recovered/Resolved]
  - Normochromic anaemia [Unknown]
